FAERS Safety Report 14951619 (Version 1)
Quarter: 2018Q2

REPORT INFORMATION
  Report Type: Spontaneous
  Country: JP (occurrence: JP)
  Receive Date: 20180530
  Receipt Date: 20180530
  Transmission Date: 20180711
  Serious: Yes (Other)
  Sender: FDA-Public Use
  Company Number: JP-PFIZER INC-2018215224

PATIENT
  Age: 73 Year
  Sex: Male
  Weight: 57.1 kg

DRUGS (4)
  1. IRINOTECAN HCL [Suspect]
     Active Substance: IRINOTECAN HYDROCHLORIDE
     Indication: COLON CANCER METASTATIC
     Dosage: UNK, CYCLIC (SECOND LINE)
  2. RAMUCIRUMAB [Suspect]
     Active Substance: RAMUCIRUMAB
     Indication: COLON CANCER METASTATIC
     Dosage: UNK, CYCLIC (SECOND LINE)
  3. FLUOROURACIL. [Suspect]
     Active Substance: FLUOROURACIL
     Indication: COLON CANCER METASTATIC
     Dosage: UNK, CYCLIC (FIRST AND SECOND LINE)
  4. CALCIUM FOLINATE [Suspect]
     Active Substance: LEUCOVORIN CALCIUM
     Indication: COLON CANCER METASTATIC
     Dosage: UNK, CYCLIC (FIRST AND SECOND LINE)

REACTIONS (3)
  - Malaise [Unknown]
  - Decreased appetite [Unknown]
  - Neutropenia [Unknown]
